FAERS Safety Report 10209249 (Version 3)
Quarter: 2014Q3

REPORT INFORMATION
  Report Type: Spontaneous
  Country: BR (occurrence: BR)
  Receive Date: 20140530
  Receipt Date: 20140910
  Transmission Date: 20150326
  Serious: Yes (Other)
  Sender: FDA-Public Use
  Company Number: BR-ASTRAZENECA-2014SE36503

PATIENT
  Age: 51 Year
  Sex: Female
  Weight: 64 kg

DRUGS (9)
  1. SELOZOK [Suspect]
     Active Substance: METOPROLOL SUCCINATE
     Indication: HYPERTENSION
     Route: 048
     Dates: start: 201408
  2. SELOZOK [Suspect]
     Active Substance: METOPROLOL SUCCINATE
     Indication: HYPERTENSION
     Route: 048
     Dates: start: 201305, end: 201404
  3. SELOZOK [Suspect]
     Active Substance: METOPROLOL SUCCINATE
     Indication: HYPERTENSION
     Route: 048
     Dates: start: 201404, end: 201408
  4. ATORVASTATIN [Concomitant]
     Active Substance: ATORVASTATIN
     Route: 048
     Dates: start: 201305
  5. VALSARTAN. [Concomitant]
     Active Substance: VALSARTAN
     Dates: start: 201408
  6. CLOPIDOGREL [Concomitant]
     Active Substance: CLOPIDOGREL BISULFATE
     Route: 048
     Dates: start: 201311
  7. APRAZ [Concomitant]
     Indication: SEDATIVE THERAPY
     Route: 048
     Dates: start: 201305
  8. ENALAPRIL MALEATE. [Concomitant]
     Active Substance: ENALAPRIL MALEATE
     Indication: HYPERTENSION
     Route: 048
     Dates: start: 201305
  9. BRILINTA [Concomitant]
     Active Substance: TICAGRELOR
     Route: 048
     Dates: start: 201305, end: 201311

REACTIONS (5)
  - Uterine cyst [Recovered/Resolved]
  - Drug ineffective [Unknown]
  - Blood pressure increased [Not Recovered/Not Resolved]
  - Chest pain [Not Recovered/Not Resolved]
  - Off label use [Not Recovered/Not Resolved]

NARRATIVE: CASE EVENT DATE: 201403
